FAERS Safety Report 5509320-0 (Version None)
Quarter: 2007Q4

REPORT INFORMATION
  Report Type: 
  Country: None (occurrence: None)
  Receive Date: 20071106
  Receipt Date: 20071030
  Transmission Date: 20080405
  Serious: Yes (Death)
  Sender: FDA-Public Use
  Company Number: 163-21880-07090617

PATIENT
  Age: 78 Year
  Sex: Female

DRUGS (2)
  1. REVLIMID [Suspect]
     Indication: MULTIPLE MYELOMA
     Dosage: 10 MG-20 MG, DAILY, ORAL; 10 MG, 1 IN 1 D, ORAL
     Route: 048
     Dates: start: 20070411, end: 20070701
  2. REVLIMID [Suspect]
     Indication: MULTIPLE MYELOMA
     Dosage: 10 MG-20 MG, DAILY, ORAL; 10 MG, 1 IN 1 D, ORAL
     Route: 048
     Dates: start: 20070822, end: 20070912

REACTIONS (2)
  - MALIGNANT NEOPLASM PROGRESSION [None]
  - MULTIPLE MYELOMA [None]
